FAERS Safety Report 17638253 (Version 1)
Quarter: 2020Q2

REPORT INFORMATION
  Report Type: Spontaneous
  Country: GB (occurrence: GB)
  Receive Date: 20200407
  Receipt Date: 20200407
  Transmission Date: 20200713
  Serious: Yes (Hospitalization)
  Sender: FDA-Public Use
  Company Number: GB-TEVA-2020-GB-1219866

PATIENT
  Age: 68 Year
  Sex: Male

DRUGS (13)
  1. FUROSEMIDE. [Concomitant]
     Active Substance: FUROSEMIDE
  2. EDOXABAN [Concomitant]
     Active Substance: EDOXABAN TOSYLATE
  3. LORAZEPAM. [Concomitant]
     Active Substance: LORAZEPAM
  4. THIAMINE. [Concomitant]
     Active Substance: THIAMINE
  5. CASSIA [Concomitant]
  6. VITAMIN B COMPLEX STRONG [Concomitant]
  7. PARACETAMOL [Concomitant]
     Active Substance: ACETAMINOPHEN
  8. DICLOFENAC SODIUM. [Concomitant]
     Active Substance: DICLOFENAC SODIUM
  9. CITALOPRAM [Concomitant]
     Active Substance: CITALOPRAM HYDROBROMIDE
  10. DIGOXIN. [Concomitant]
     Active Substance: DIGOXIN
  11. BUPRENORPHINE. [Suspect]
     Active Substance: BUPRENORPHINE
     Dosage: VARIOUS 5-20 MICROGRAMS ONCE WEEKLY (1 DF)
     Route: 062
     Dates: start: 201910, end: 20200207
  12. LACTULOSE. [Concomitant]
     Active Substance: LACTULOSE
  13. RANITIDINE. [Concomitant]
     Active Substance: RANITIDINE

REACTIONS (1)
  - Hallucination [Recovered/Resolved with Sequelae]

NARRATIVE: CASE EVENT DATE: 20191109
